FAERS Safety Report 5074974-2 (Version None)
Quarter: 2006Q3

REPORT INFORMATION
  Report Type: 
  Country: None (occurrence: None)
  Receive Date: 20060804
  Receipt Date: 20060719
  Transmission Date: 20061208
  Serious: Yes (Life-Threatening, Other)
  Sender: FDA-Public Use
  Company Number: 2006BH000843

PATIENT
  Sex: 0

DRUGS (1)
  1. SEVOFLURANE [Suspect]
     Indication: ANAESTHESIA

REACTIONS (4)
  - ANAESTHETIC COMPLICATION [None]
  - BRADYCARDIA [None]
  - CARDIAC ARREST [None]
  - HYPOTENSION [None]
